FAERS Safety Report 6609569-X (Version None)
Quarter: 2010Q1

REPORT INFORMATION
  Report Type: 
  Country: None (occurrence: None)
  Receive Date: 20100302
  Receipt Date: 20100222
  Transmission Date: 20100710
  Serious: Yes (Hospitalization)
  Sender: FDA-Public Use
  Company Number: US-JNJFOC-20100209265

PATIENT
  Sex: Male
  Weight: 97.07 kg

DRUGS (19)
  1. REMICADE [Suspect]
     Indication: RHEUMATOID ARTHRITIS
     Route: 042
  2. REMICADE [Suspect]
     Route: 042
  3. REMICADE [Suspect]
     Route: 042
  4. REMICADE [Suspect]
     Route: 042
  5. REMICADE [Suspect]
     Route: 042
  6. PREDNISONE [Suspect]
     Indication: RHEUMATOID ARTHRITIS
  7. PREDNISONE [Suspect]
  8. PREDNISONE [Suspect]
  9. PREDNISONE [Suspect]
  10. METHOTREXATE [Suspect]
     Indication: RHEUMATOID ARTHRITIS
  11. METHOTREXATE [Suspect]
  12. METHOTREXATE [Suspect]
  13. PRILOSEC [Concomitant]
  14. LIPITOR [Concomitant]
  15. PROSCAR [Concomitant]
  16. PROCARDIA XL [Concomitant]
  17. AVAPRO [Concomitant]
  18. ASPIRIN [Concomitant]
  19. HYDROCHLOROTHIAZIDE [Concomitant]

REACTIONS (3)
  - IIIRD NERVE PARALYSIS [None]
  - MENINGITIS CRYPTOCOCCAL [None]
  - VIITH NERVE PARALYSIS [None]
